FAERS Safety Report 10426899 (Version 3)
Quarter: 2014Q3

REPORT INFORMATION
  Report Type: Spontaneous
  Country: CH (occurrence: CH)
  Receive Date: 20140903
  Receipt Date: 20140923
  Transmission Date: 20150326
  Serious: Yes (Other)
  Sender: FDA-Public Use
  Company Number: CH-AMGEN-CHESP2014066502

PATIENT
  Age: 66 Year
  Sex: Female
  Weight: 50.7 kg

DRUGS (4)
  1. PROLIA [Suspect]
     Active Substance: DENOSUMAB
     Indication: OSTEOPOROSIS POSTMENOPAUSAL
     Dosage: 60 MG, UNK
     Route: 058
     Dates: start: 20140131
  2. KALCIPOS [Concomitant]
     Active Substance: CALCIUM CARBONATE
     Dosage: 500/800 UNK, UNK
     Route: 048
     Dates: start: 20140326
  3. CALCIMAGON                         /00751501/ [Concomitant]
     Active Substance: CALCIUM CARBONATE
     Indication: SUPPLEMENTATION THERAPY
     Dosage: UNK
     Route: 065
     Dates: start: 20140131, end: 20140325
  4. EUTHYROX [Concomitant]
     Active Substance: LEVOTHYROXINE SODIUM
     Dosage: 50 UNK, UNK
     Route: 048
     Dates: start: 20090318

REACTIONS (4)
  - Injection site erythema [Recovered/Resolved]
  - Herpes zoster [Unknown]
  - Haemorrhagic vasculitis [Recovered/Resolved]
  - Influenza [Recovered/Resolved]

NARRATIVE: CASE EVENT DATE: 20140722
